FAERS Safety Report 6154795-X (Version None)
Quarter: 2009Q2

REPORT INFORMATION
  Report Type: 
  Country: None (occurrence: None)
  Receive Date: 20090414
  Receipt Date: 20090406
  Transmission Date: 20091009
  Serious: Yes (Other)
  Sender: FDA-Public Use
  Company Number: PHHY2009GB12891

PATIENT
  Sex: Male
  Weight: 73 kg

DRUGS (2)
  1. CLOZARIL [Suspect]
     Indication: SCHIZOPHRENIA
     Dosage: UNK
     Route: 048
     Dates: start: 20030310
  2. CLOZARIL [Suspect]
     Dosage: 500 MG DAILY
     Dates: end: 20090220

REACTIONS (8)
  - CARDIOMYOPATHY [None]
  - CHEST DISCOMFORT [None]
  - FATIGUE [None]
  - HAEMOGLOBIN DECREASED [None]
  - NAUSEA [None]
  - PERICARDIAL EFFUSION [None]
  - RENAL IMPAIRMENT [None]
  - VOMITING [None]
